FAERS Safety Report 7218827-X (Version None)
Quarter: 2011Q1

REPORT INFORMATION
  Report Type: 
  Country: None (occurrence: None)
  Receive Date: 20110110
  Receipt Date: 20100719
  Transmission Date: 20110831
  Serious: No
  Sender: FDA-Public Use
  Company Number: US-ABBOTT-10P-163-0658234-00

PATIENT
  Age: 45 Year
  Sex: Female

DRUGS (3)
  1. VALTREX [Concomitant]
     Indication: PAPILLOMA VIRAL INFECTION
  2. VICODIN [Suspect]
     Indication: PRODUCT USED FOR UNKNOWN INDICATION
  3. VALTREX [Concomitant]
     Indication: HERPES VIRUS INFECTION

REACTIONS (1)
  - RASH [None]
